FAERS Safety Report 5844816-3 (Version None)
Quarter: 2008Q3

REPORT INFORMATION
  Report Type: 
  Country: None (occurrence: None)
  Receive Date: 20080814
  Receipt Date: 20080811
  Transmission Date: 20090109
  Serious: Yes (Death)
  Sender: FDA-Public Use
  Company Number: AT-BRISTOL-MYERS SQUIBB COMPANY-14296925

PATIENT
  Age: 1 Year
  Sex: Male

DRUGS (2)
  1. IFOSFAMIDE [Suspect]
     Indication: MEDULLOBLASTOMA RECURRENT
  2. ETOPOSIDE [Suspect]
     Indication: MEDULLOBLASTOMA RECURRENT

REACTIONS (1)
  - LYMPHOHISTIOCYTOSIS [None]
